FAERS Safety Report 6207874-2 (Version None)
Quarter: 2009Q2

REPORT INFORMATION
  Report Type: 
  Country: None (occurrence: None)
  Receive Date: 20090527
  Receipt Date: 20090522
  Transmission Date: 20091009
  Serious: Yes (Life-Threatening, Hospitalization, Disabling)
  Sender: FDA-Public Use
  Company Number: SP02374

PATIENT
  Age: 80 Year
  Sex: Female
  Weight: 59.4212 kg

DRUGS (7)
  1. MOVIPREP [Suspect]
     Indication: COLONOSCOPY
     Dosage: (SPLIT DOSE), ORAL
     Route: 048
     Dates: start: 20090504, end: 20090505
  2. DIURETICS [Suspect]
  3. EVISTA [Concomitant]
  4. QUINAPRIL [Concomitant]
  5. HYDROCHLOROTHIAZIDE [Concomitant]
  6. LOVASTATIN [Concomitant]
  7. DULCOLAX [Suspect]

REACTIONS (10)
  - BLOOD SODIUM DECREASED [None]
  - BLOOD UREA INCREASED [None]
  - DEHYDRATION [None]
  - DIARRHOEA [None]
  - FALL [None]
  - HAEMATOMA [None]
  - HEAD INJURY [None]
  - HYPOKALAEMIA [None]
  - LOSS OF CONSCIOUSNESS [None]
  - VOMITING [None]
